FAERS Safety Report 12071769 (Version 1)
Quarter: 2016Q1

REPORT INFORMATION
  Report Type: Spontaneous
  Country: FR (occurrence: FR)
  Receive Date: 20160212
  Receipt Date: 20160212
  Transmission Date: 20160526
  Serious: Yes (Death, Other)
  Sender: FDA-Public Use
  Company Number: FR-BRISTOL-MYERS SQUIBB COMPANY-BMS-2016-009397

PATIENT
  Age: 62 Year
  Sex: Male

DRUGS (9)
  1. ISENTRESS [Concomitant]
     Active Substance: RALTEGRAVIR POTASSIUM
     Indication: HIV TEST POSITIVE
     Dosage: 400 MG, BID
     Route: 048
  2. DAKLINZA [Suspect]
     Active Substance: DACLATASVIR
     Indication: HEPATITIS C
     Dosage: UNK
     Route: 048
     Dates: start: 20150706, end: 20160107
  3. BISOPROLOL [Concomitant]
     Active Substance: BISOPROLOL
     Indication: CARDIAC DISORDER
     Dosage: UNK
     Route: 048
     Dates: start: 20160107
  4. TAHOR [Concomitant]
     Active Substance: ATORVASTATIN CALCIUM
     Indication: CARDIAC DISORDER
     Dosage: 20 MG, QD
     Route: 048
  5. ETRAVIRINE [Concomitant]
     Active Substance: ETRAVIRINE
     Indication: HIV TEST POSITIVE
     Dosage: 200 MG, BID
     Route: 048
  6. SOVALDI [Suspect]
     Active Substance: SOFOSBUVIR
     Indication: HEPATITIS C
     Dosage: UNK
     Route: 048
     Dates: start: 20150706, end: 20160107
  7. RAMIPRIL. [Concomitant]
     Active Substance: RAMIPRIL
     Indication: CARDIAC DISORDER
     Dosage: 1.25 MG, QD
     Route: 048
  8. ZIAGEN [Concomitant]
     Active Substance: ABACAVIR SULFATE
     Indication: HIV TEST POSITIVE
     Route: 048
  9. KARDEGIC [Concomitant]
     Active Substance: ASPIRIN LYSINE
     Indication: CARDIAC DISORDER
     Dosage: 75 MG, QD
     Route: 048

REACTIONS (3)
  - Asthenia [Unknown]
  - Insomnia [Unknown]
  - Sudden death [Fatal]

NARRATIVE: CASE EVENT DATE: 20160107
